FAERS Safety Report 6496036-X (Version None)
Quarter: 2009Q4

REPORT INFORMATION
  Report Type: 
  Country: None (occurrence: None)
  Receive Date: 20091214
  Receipt Date: 20090918
  Transmission Date: 20100525
  Serious: No
  Sender: FDA-Public Use
  Company Number: US-BRISTOL-MYERS SQUIBB COMPANY-14785026

PATIENT
  Age: 50 Year
  Sex: Male

DRUGS (4)
  1. ABILIFY [Suspect]
     Indication: BIPOLAR DISORDER
     Dosage: INCREASES TO 30MG
     Dates: start: 20080601
  2. WELLBUTRIN [Concomitant]
  3. EFFEXOR [Concomitant]
  4. INTERFERON [Concomitant]

REACTIONS (1)
  - TARDIVE DYSKINESIA [None]
